FAERS Safety Report 20061466 (Version 1)
Quarter: 2021Q4

REPORT INFORMATION
  Report Type: Spontaneous
  Country: US (occurrence: US)
  Receive Date: 20211112
  Receipt Date: 20211112
  Transmission Date: 20220304
  Serious: Yes (Hospitalization, Other)
  Sender: FDA-Public Use
  Company Number: US-NOVARTISPH-NVSC2021US254075

PATIENT

DRUGS (1)
  1. LUTATHERA [Suspect]
     Active Substance: LUTETIUM OXODOTREOTIDE LU-177
     Indication: Product used for unknown indication
     Dosage: 200 MCI (STANDARD DOSE OF 4 DOSE REGIMEN)
     Route: 065
     Dates: start: 20211019

REACTIONS (3)
  - Hepatic failure [Unknown]
  - Biliary obstruction [Recovered/Resolved]
  - Blood bilirubin abnormal [Recovered/Resolved]
